FAERS Safety Report 19005091 (Version 2)
Quarter: 2021Q2

REPORT INFORMATION
  Report Type: Other
  Country: FR (occurrence: FR)
  Receive Date: 20210312
  Receipt Date: 20210622
  Transmission Date: 20210717
  Serious: Yes (Other)
  Sender: FDA-Public Use
  Company Number: FR-ROCHE-2673330

PATIENT
  Age: 58 Year
  Sex: Female
  Weight: 39 kg

DRUGS (15)
  1. LEVOFOLINATE [Concomitant]
     Active Substance: LEVOLEUCOVORIN CALCIUM
     Indication: NEOPLASM MALIGNANT
  2. ATEZOLIZUMAB. [Suspect]
     Active Substance: ATEZOLIZUMAB
     Route: 042
     Dates: start: 20190619
  3. ULTIBRO [Concomitant]
     Active Substance: GLYCOPYRRONIUM\INDACATEROL
     Indication: COUGH
  4. RED BLOOD CELL CONCENTRATE [Concomitant]
     Active Substance: HUMAN RED BLOOD CELL
     Dates: start: 20191218, end: 20191218
  5. PAROXETINE. [Concomitant]
     Active Substance: PAROXETINE
     Indication: ANXIETY
  6. PARACETAMOL [Concomitant]
     Active Substance: ACETAMINOPHEN
     Dates: start: 201909, end: 201912
  7. CARBOPLATINE [Concomitant]
     Active Substance: CARBOPLATIN
     Indication: NEOPLASM MALIGNANT
  8. ATEZOLIZUMAB. [Suspect]
     Active Substance: ATEZOLIZUMAB
     Route: 042
     Dates: start: 20190717
  9. TRAMADOL. [Concomitant]
     Active Substance: TRAMADOL
     Dates: start: 201910, end: 201912
  10. GEMCITABINE. [Concomitant]
     Active Substance: GEMCITABINE
     Dates: start: 20190904, end: 20191127
  11. CARBOPLATINE [Concomitant]
     Active Substance: CARBOPLATIN
     Dates: start: 20190904, end: 20191127
  12. OMEPRAZOLE. [Concomitant]
     Active Substance: OMEPRAZOLE
     Dates: start: 20191128
  13. FLUOROURACIL. [Concomitant]
     Active Substance: FLUOROURACIL
     Indication: NEOPLASM MALIGNANT
  14. CISPLATINE [Concomitant]
     Active Substance: CISPLATIN
     Indication: NEOPLASM MALIGNANT
  15. ATEZOLIZUMAB. [Suspect]
     Active Substance: ATEZOLIZUMAB
     Indication: NON-SMALL CELL LUNG CANCER METASTATIC
     Dosage: DATE OF MOST RECENT DOSE OF ATEZOLIZUMAB PRIOR TO AE ONSET: 17/JUL/2019
     Route: 042
     Dates: start: 20190529

REACTIONS (1)
  - Hypokalaemia [Recovered/Resolved]

NARRATIVE: CASE EVENT DATE: 201912
